FAERS Safety Report 24979974 (Version 1)
Quarter: 2025Q1

REPORT INFORMATION
  Report Type: Spontaneous
  Country: US (occurrence: US)
  Receive Date: 20250218
  Receipt Date: 20250218
  Transmission Date: 20250409
  Serious: No
  Sender: JOHNSON AND JOHNSON
  Company Number: US-JNJFOC-20241269640

PATIENT
  Age: 5 Decade
  Sex: Female

DRUGS (1)
  1. TREMFYA [Suspect]
     Active Substance: GUSELKUMAB
     Indication: Psoriasis

REACTIONS (7)
  - Product dose omission issue [Unknown]
  - Product storage error [Unknown]
  - Product lot number issue [Unknown]
  - Product use complaint [Unknown]
  - Product storage error [Unknown]
  - Product storage error [Unknown]
  - Product packaging issue [Unknown]
